FAERS Safety Report 13590191 (Version 2)
Quarter: 2017Q3

REPORT INFORMATION
  Report Type: Spontaneous
  Country: US (occurrence: US)
  Receive Date: 20170530
  Receipt Date: 20170801
  Transmission Date: 20171127
  Serious: No
  Sender: FDA-Public Use
  Company Number: US-STRONGBRIDGE BIOPHARMA-SR-KEV-2017-017

PATIENT
  Age: 57 Year
  Sex: Female

DRUGS (9)
  1. PYRIDOSTIGMINE [Concomitant]
     Active Substance: PYRIDOSTIGMINE
     Indication: PRODUCT USED FOR UNKNOWN INDICATION
  2. IMODIUM [Concomitant]
     Active Substance: LOPERAMIDE HYDROCHLORIDE
     Indication: GASTROINTESTINAL DISORDER
  3. KEVEYIS [Suspect]
     Active Substance: DICHLORPHENAMIDE
     Indication: FAMILIAL PERIODIC PARALYSIS
     Route: 048
     Dates: start: 2017, end: 2017
  4. EFFER-K [Concomitant]
     Indication: PRODUCT USED FOR UNKNOWN INDICATION
     Dosage: THE PATIENT VARIES HER DOSE ON HOW SHE FEELS
  5. MESTINON [Concomitant]
     Active Substance: PYRIDOSTIGMINE BROMIDE
     Indication: PRODUCT USED FOR UNKNOWN INDICATION
     Dosage: NOT USED IN 3 MONTHS
  6. KLONOPIN [Concomitant]
     Active Substance: CLONAZEPAM
     Indication: PRODUCT USED FOR UNKNOWN INDICATION
     Dosage: NOT USED IN ABOUT 2 MONTHS
  7. IMODIUM [Concomitant]
     Active Substance: LOPERAMIDE HYDROCHLORIDE
     Indication: ABDOMINAL DISCOMFORT
  8. KEVEYIS [Suspect]
     Active Substance: DICHLORPHENAMIDE
     Route: 048
     Dates: start: 2017
  9. AMILORIDE [Concomitant]
     Active Substance: AMILORIDE
     Indication: PRODUCT USED FOR UNKNOWN INDICATION

REACTIONS (14)
  - Abdominal discomfort [Unknown]
  - Dysgeusia [Unknown]
  - Dizziness [Unknown]
  - Decreased appetite [Recovered/Resolved]
  - Therapeutic response unexpected [Unknown]
  - Therapy change [Unknown]
  - Nausea [Unknown]
  - Diarrhoea [Unknown]
  - Paraesthesia [Recovered/Resolved]
  - Fatigue [Recovered/Resolved]
  - Paraesthesia [Unknown]
  - Muscle spasms [Unknown]
  - Vertigo positional [Unknown]
  - Asthenia [Unknown]

NARRATIVE: CASE EVENT DATE: 20170503
